FAERS Safety Report 4933081-7 (Version None)
Quarter: 2006Q1

REPORT INFORMATION
  Report Type: 
  Country: None (occurrence: None)
  Receive Date: 20060301
  Receipt Date: 20060215
  Transmission Date: 20060701
  Serious: Yes (Other)
  Sender: FDA-Public Use
  Company Number: 2006US-01629

PATIENT
  Sex: 0

DRUGS (1)
  1. ISOTRETINOIN [Suspect]

REACTIONS (1)
  - STEVENS-JOHNSON SYNDROME [None]
